FAERS Safety Report 20154077 (Version 1)
Quarter: 2021Q4

REPORT INFORMATION
  Report Type: Spontaneous
  Country: US (occurrence: US)
  Receive Date: 20211207
  Receipt Date: 20211207
  Transmission Date: 20220303
  Serious: No
  Sender: FDA-Public Use
  Company Number: US-PRINSTON PHARMACEUTICAL INC.-2021PRN00193

PATIENT
  Sex: Male

DRUGS (3)
  1. RISPERIDONE [Suspect]
     Active Substance: RISPERIDONE
     Dosage: 1 MG, 2X/DAY
     Dates: start: 2020, end: 2020
  2. RISPERIDONE [Suspect]
     Active Substance: RISPERIDONE
     Dosage: 1 MG, 1X/DAY IN THE MORNING
     Dates: start: 2020
  3. RISPERIDONE [Suspect]
     Active Substance: RISPERIDONE
     Dosage: 2 MG, 1X/DAY IN THE EVENING
     Dates: start: 2020

REACTIONS (2)
  - Tic [Not Recovered/Not Resolved]
  - Reaction to excipient [Unknown]

NARRATIVE: CASE EVENT DATE: 20200101
